FAERS Safety Report 12389972 (Version 1)
Quarter: 2016Q2

REPORT INFORMATION
  Report Type: Spontaneous
  Country: US (occurrence: US)
  Receive Date: 20160520
  Receipt Date: 20160520
  Transmission Date: 20160815
  Serious: Yes (Other)
  Sender: FDA-Public Use
  Company Number: US-SA-2016SA093568

PATIENT
  Sex: Male

DRUGS (7)
  1. CARTIA XT [Concomitant]
     Active Substance: DILTIAZEM HYDROCHLORIDE
     Dosage: 120/24 HR
  2. ALBUTEROL. [Concomitant]
     Active Substance: ALBUTEROL
     Dosage: NEB, 0.083%
  3. TEMAZEPAM. [Concomitant]
     Active Substance: TEMAZEPAM
     Dosage: 15 MG
  4. GABAPENTIN. [Concomitant]
     Active Substance: GABAPENTIN
     Dosage: 300 MG
  5. DILTIAZEM [Concomitant]
     Active Substance: DILTIAZEM
     Dosage: 120 MG ER
  6. AUBAGIO [Suspect]
     Active Substance: TERIFLUNOMIDE
     Indication: MULTIPLE SCLEROSIS
     Route: 048
  7. DONEPEZIL. [Concomitant]
     Active Substance: DONEPEZIL
     Dosage: 10 MG

REACTIONS (1)
  - Ulcer haemorrhage [Not Recovered/Not Resolved]
